FAERS Safety Report 5796739-6 (Version None)
Quarter: 2008Q3

REPORT INFORMATION
  Report Type: 
  Country: None (occurrence: None)
  Receive Date: 20080701
  Receipt Date: 20080623
  Transmission Date: 20090109
  Serious: Yes (Hospitalization)
  Sender: FDA-Public Use
  Company Number: US-MERCK-0706USA02077

PATIENT
  Age: 67 Year
  Sex: Female

DRUGS (1)
  1. FOSAMAX [Suspect]
     Indication: OSTEOPOROSIS
     Route: 048

REACTIONS (18)
  - ABSCESS [None]
  - GINGIVITIS [None]
  - HYPERLIPIDAEMIA [None]
  - HYPERTENSION [None]
  - INTRACRANIAL ANEURYSM [None]
  - MENTAL STATUS CHANGES [None]
  - MOUTH ULCERATION [None]
  - MYOFASCIAL PAIN SYNDROME [None]
  - OEDEMA MOUTH [None]
  - ORAL PAIN [None]
  - PAIN IN JAW [None]
  - SYNCOPE [None]
  - TOOTH DISORDER [None]
  - TOOTH LOSS [None]
  - TRIGEMINAL NEURALGIA [None]
  - VERTIGO [None]
  - VOMITING [None]
  - WEIGHT FLUCTUATION [None]
